FAERS Safety Report 5006052-2 (Version None)
Quarter: 2006Q1

REPORT INFORMATION
  Report Type: 
  Country: None (occurrence: None)
  Receive Date: 20060328
  Receipt Date: 20050907
  Transmission Date: 20060701
  Serious: Yes (Hospitalization, Other)
  Sender: FDA-Public Use
  Company Number: 20378

PATIENT
  Age: 56 Year
  Sex: Female
  Weight: 55 kg

DRUGS (1)
  1. ADRIAMYCIN (DOXORUBICIN) INJ. USP 10MG/5ML [Suspect]
     Indication: BREAST CANCER METASTATIC
     Dosage: 75MG/Q 3WK/IV
     Route: 042
     Dates: start: 20050801, end: 20050801

REACTIONS (1)
  - FEBRILE NEUTROPENIA [None]
